FAERS Safety Report 20194985 (Version 1)
Quarter: 2021Q4

REPORT INFORMATION
  Report Type: Spontaneous
  Country: US (occurrence: None)
  Receive Date: 20211216
  Receipt Date: 20211216
  Transmission Date: 20220303
  Serious: Yes (Other)
  Sender: FDA-Public Use
  Company Number: None

PATIENT
  Age: 14 Year
  Sex: Female
  Weight: 81 kg

DRUGS (3)
  1. NEUTROGENA BEACH DEFENSE WATER PLUS SUN PROTECTION SUNSCREEN BROAD SPE [Suspect]
     Active Substance: AVOBENZONE\HOMOSALATE\OCTISALATE\OCTOCRYLENE
     Indication: Prophylaxis against solar radiation
     Dosage: OTHER STRENGTH : SPF;?
     Route: 061
     Dates: start: 20210607, end: 20210607
  2. CLARITIN [Concomitant]
     Active Substance: LORATADINE
  3. NASONEX [Concomitant]
     Active Substance: MOMETASONE FUROATE

REACTIONS (5)
  - Application site burn [None]
  - Application site vesicles [None]
  - Application site erythema [None]
  - Application site pain [None]
  - Skin injury [None]

NARRATIVE: CASE EVENT DATE: 20210607
